FAERS Safety Report 18373227 (Version 1)
Quarter: 2020Q4

REPORT INFORMATION
  Report Type: Report from Study
  Country: BR (occurrence: BR)
  Receive Date: 20201012
  Receipt Date: 20201012
  Transmission Date: 20210114
  Serious: Yes (Life-Threatening)
  Sender: FDA-Public Use
  Company Number: NVSC2020BR274346

PATIENT
  Sex: Female
  Weight: 2.33 kg

DRUGS (1)
  1. OMNITROPE [Suspect]
     Active Substance: SOMATROPIN
     Indication: FOETAL EXPOSURE DURING PREGNANCY
     Dosage: MATERNAL DOSE: 5MG, MATERNAL EXPOSURE DURING PREGNANCY
     Route: 064
     Dates: start: 201705, end: 201708

REACTIONS (1)
  - Lung disorder [Recovered/Resolved]
